FAERS Safety Report 9913541 (Version 1)
Quarter: 2014Q1

REPORT INFORMATION
  Report Type: Report from Study
  Country: JP (occurrence: JP)
  Receive Date: 20140220
  Receipt Date: 20140220
  Transmission Date: 20141002
  Serious: Yes (Other)
  Sender: FDA-Public Use
  Company Number: JP-PFIZER INC-2014045475

PATIENT
  Age: 42 Year
  Sex: Female

DRUGS (1)
  1. HYSRON [Suspect]
     Dosage: UNK
     Route: 048

REACTIONS (2)
  - Visual acuity reduced [Unknown]
  - Generalised oedema [Unknown]
